FAERS Safety Report 9858930 (Version 1)
Quarter: 2014Q1

REPORT INFORMATION
  Report Type: Spontaneous
  Country: US (occurrence: None)
  Receive Date: 20140129
  Receipt Date: 20140129
  Transmission Date: 20141002
  Serious: Yes (Other)
  Sender: FDA-Public Use
  Company Number: SYM-2014-15247

PATIENT
  Age: 51 Year
  Sex: Female

DRUGS (1)
  1. XENAZINE (12.5 MILLIGRAM, TABLET) (TETRABENAZINE, TETRABENAZINE) [Suspect]
     Indication: HUNTINGTON^S DISEASE
     Dosage: EVERY MORNING, ORAL
     Route: 048
     Dates: start: 20140101

REACTIONS (2)
  - Fall [None]
  - Ankle fracture [None]
